FAERS Safety Report 8716878 (Version 3)
Quarter: 2013Q4

REPORT INFORMATION
  Report Type: Spontaneous
  Country: GB (occurrence: GB)
  Receive Date: 20120810
  Receipt Date: 20131105
  Transmission Date: 20140711
  Serious: Yes (Hospitalization, Other)
  Sender: FDA-Public Use
  Company Number: GB-009507513-1208GBR001126

PATIENT
  Age: 3 Month
  Sex: Male

DRUGS (1)
  1. ONCOTICE [Suspect]
     Indication: IMMUNISATION
     Route: 023
     Dates: start: 20120518, end: 20120518

REACTIONS (7)
  - Pallor [Not Recovered/Not Resolved]
  - Petechiae [Not Recovered/Not Resolved]
  - Respiratory rate increased [Not Recovered/Not Resolved]
  - Respiratory tract congestion [Not Recovered/Not Resolved]
  - Tachycardia [Not Recovered/Not Resolved]
  - Neutropenia [Not Recovered/Not Resolved]
  - Thrombocytopenia [Not Recovered/Not Resolved]
